FAERS Safety Report 21561405 (Version 1)
Quarter: 2022Q4

REPORT INFORMATION
  Report Type: Report from Study
  Country: SA (occurrence: SA)
  Receive Date: 20221107
  Receipt Date: 20221107
  Transmission Date: 20230113
  Serious: Yes (Hospitalization, Other)
  Sender: FDA-Public Use
  Company Number: SA-AMGEN-SAUSL2021172354

PATIENT
  Age: 58 Year
  Sex: Male

DRUGS (1)
  1. REPATHA [Suspect]
     Active Substance: EVOLOCUMAB
     Indication: Dyslipidaemia
     Dosage: UNK, Q2WK
     Route: 065

REACTIONS (4)
  - Road traffic accident [Unknown]
  - Dermatitis allergic [Unknown]
  - Fatigue [Unknown]
  - Arterial occlusive disease [Unknown]
